FAERS Safety Report 15417493 (Version 1)
Quarter: 2018Q3

REPORT INFORMATION
  Report Type: Spontaneous
  Country: US (occurrence: US)
  Receive Date: 20180924
  Receipt Date: 20180924
  Transmission Date: 20181010
  Serious: Yes (Other)
  Sender: FDA-Public Use
  Company Number: US-BIO PRODUCTS LABORATORY LTD-2055242

PATIENT
  Age: 72 Year
  Sex: Female

DRUGS (2)
  1. STEROID TREATMENT (UNSPECIFIED) [Concomitant]
  2. GENERIC IVIG [Suspect]
     Active Substance: HUMAN IMMUNOGLOBULIN G
     Route: 042

REACTIONS (2)
  - Conjunctivitis [Recovered/Resolved with Sequelae]
  - Uveitis [Recovered/Resolved with Sequelae]
